FAERS Safety Report 18292805 (Version 1)
Quarter: 2020Q3

REPORT INFORMATION
  Report Type: Spontaneous
  Country: ES (occurrence: ES)
  Receive Date: 20200922
  Receipt Date: 20200922
  Transmission Date: 20201103
  Serious: Yes (Hospitalization, Other)
  Sender: FDA-Public Use
  Company Number: ES-ACCORD-202048

PATIENT
  Age: 42 Year
  Sex: Female

DRUGS (6)
  1. SERTRALINE [Suspect]
     Active Substance: SERTRALINE HYDROCHLORIDE
     Indication: MAJOR DEPRESSION
     Route: 048
     Dates: start: 20170919
  2. LEPONEX [Interacting]
     Active Substance: CLOZAPINE
     Indication: SCHIZOPHRENIA
     Dosage: 1/2?0?1/2
     Route: 048
     Dates: start: 20191218
  3. TRILEPTAL [Interacting]
     Active Substance: OXCARBAZEPINE
     Indication: SCHIZOPHRENIA
     Dosage: 1?0?1
     Route: 048
     Dates: start: 20190321
  4. EUTIROX [Concomitant]
     Active Substance: LEVOTHYROXINE SODIUM
     Indication: HYPOTHYROIDISM
     Dosage: 75 MG TABLETS, 100 TABLETS
     Dates: start: 20190124
  5. DEPAKINE [Interacting]
     Active Substance: VALPROATE SODIUM
     Indication: EPILEPSY
     Route: 048
     Dates: start: 20200611
  6. DEPAKINE [Interacting]
     Active Substance: VALPROATE SODIUM
     Indication: EPILEPSY
     Dosage: 1?01, 100 TABLETS
     Route: 048
     Dates: start: 20170425, end: 20200610

REACTIONS (2)
  - Inappropriate antidiuretic hormone secretion [Recovered/Resolved]
  - Drug interaction [Unknown]

NARRATIVE: CASE EVENT DATE: 20200625
